FAERS Safety Report 22530826 (Version 3)
Quarter: 2023Q4

REPORT INFORMATION
  Report Type: Report from Study
  Country: FR (occurrence: FR)
  Receive Date: 20230607
  Receipt Date: 20231017
  Transmission Date: 20240109
  Serious: Yes (Hospitalization, Other)
  Sender: FDA-Public Use
  Company Number: FR-002147023-NVSC2023FR128168

PATIENT
  Age: 3 Year
  Sex: Male
  Weight: 15.2 kg

DRUGS (4)
  1. SANDIMMUNE [Suspect]
     Active Substance: CYCLOSPORINE
     Indication: Prophylaxis against graft versus host disease
     Dosage: 25 MG
     Route: 042
     Dates: start: 20230320, end: 20230418
  2. PIPERACILLIN SODIUM\TAZOBACTAM SODIUM [Concomitant]
     Active Substance: PIPERACILLIN SODIUM\TAZOBACTAM SODIUM
     Indication: Febrile bone marrow aplasia
     Dosage: UNK
     Route: 042
     Dates: start: 20230319, end: 20230417
  3. VANCOMYCIN [Concomitant]
     Active Substance: VANCOMYCIN
     Indication: Febrile bone marrow aplasia
     Dosage: UNK
     Route: 042
     Dates: start: 20230322, end: 20230330
  4. LINEZOLID [Concomitant]
     Active Substance: LINEZOLID
     Indication: Febrile bone marrow aplasia
     Dosage: UNK
     Route: 042
     Dates: start: 20230330, end: 20230413

REACTIONS (17)
  - Venoocclusive disease [Recovered/Resolved]
  - Graft complication [Unknown]
  - Ascites [Unknown]
  - Renal failure [Unknown]
  - Thrombocytopenia [Unknown]
  - Blood bilirubin increased [Recovering/Resolving]
  - Abdominal distension [Unknown]
  - Eyelid oedema [Recovered/Resolved]
  - Hepatomegaly [Recovered/Resolved]
  - Blood albumin decreased [Not Recovered/Not Resolved]
  - Blood potassium decreased [Unknown]
  - Skin lesion [Unknown]
  - Blood creatinine increased [Unknown]
  - Weight increased [Recovering/Resolving]
  - Oedema peripheral [Recovered/Resolved]
  - BK virus infection [Unknown]
  - Varicella zoster virus infection [Unknown]

NARRATIVE: CASE EVENT DATE: 20230320
